FAERS Safety Report 7811493-1 (Version None)
Quarter: 2011Q4

REPORT INFORMATION
  Report Type: 
  Country: None (occurrence: None)
  Receive Date: 20111013
  Receipt Date: 20111013
  Transmission Date: 20120403
  Serious: No
  Sender: FDA-Public Use
  Company Number: None

PATIENT
  Age: 8 Year
  Sex: Male
  Weight: 20.7 kg

DRUGS (1)
  1. PEGASPARGASE [Suspect]
     Indication: CHEMOTHERAPY
     Dosage: 2175 UNITS
     Route: 042

REACTIONS (1)
  - HYPERSENSITIVITY [None]
